FAERS Safety Report 15320821 (Version 2)
Quarter: 2018Q3

REPORT INFORMATION
  Report Type: Spontaneous
  Country: US (occurrence: US)
  Receive Date: 20180827
  Receipt Date: 20180907
  Transmission Date: 20181010
  Serious: Yes (Other)
  Sender: FDA-Public Use
  Company Number: US-AUROBINDO-AUR-APL-2018-042809

PATIENT
  Age: 53 Year
  Sex: Female

DRUGS (3)
  1. CORTICOTROPIN [Suspect]
     Active Substance: CORTICOTROPIN
     Dosage: 80 UNK, 3 MONTHS BACK
     Route: 065
  2. CORTICOTROPIN [Suspect]
     Active Substance: CORTICOTROPIN
     Indication: PRODUCT USED FOR UNKNOWN INDICATION
     Dosage: 40 MILLIGRAM, UNK
     Route: 065
  3. PREDNISONE. [Suspect]
     Active Substance: PREDNISONE
     Indication: PRODUCT USED FOR UNKNOWN INDICATION
     Dosage: 10 MILLIGRAM, DAILY
     Route: 065

REACTIONS (14)
  - Hyperglycaemia [Unknown]
  - Dry mouth [Unknown]
  - Obesity [Unknown]
  - Fatigue [Unknown]
  - Confusional state [Unknown]
  - Abdominal discomfort [Unknown]
  - Asthenia [Unknown]
  - Weight increased [Unknown]
  - Abnormal loss of weight [Unknown]
  - Cushingoid [Unknown]
  - Thirst [Unknown]
  - Nausea [Unknown]
  - Diabetic ketoacidosis [Unknown]
  - Oedema peripheral [Unknown]
